FAERS Safety Report 5972351-0 (Version None)
Quarter: 2008Q4

REPORT INFORMATION
  Report Type: 
  Country: None (occurrence: None)
  Receive Date: 20081201
  Receipt Date: 20081028
  Transmission Date: 20090506
  Serious: No
  Sender: FDA-Public Use
  Company Number: US-TEVA-179714USA

PATIENT
  Sex: Female

DRUGS (2)
  1. AZILECT [Suspect]
     Indication: PARKINSON'S DISEASE
     Route: 048
     Dates: start: 20060101
  2. AZILECT [Suspect]
     Route: 048
     Dates: start: 20080901

REACTIONS (1)
  - PHOTOPHOBIA [None]
